FAERS Safety Report 7114269-6 (Version None)
Quarter: 2010Q4

REPORT INFORMATION
  Report Type: 
  Country: None (occurrence: None)
  Receive Date: 20101119
  Receipt Date: 20101109
  Transmission Date: 20110411
  Serious: Yes (Hospitalization)
  Sender: FDA-Public Use
  Company Number: PHHY2010JP76150

PATIENT
  Sex: Male
  Weight: 55 kg

DRUGS (2)
  1. LAMISIL [Suspect]
     Indication: TINEA INFECTION
     Dosage: 125 MG
     Route: 048
     Dates: start: 20100801
  2. ALLELOCK [Suspect]
     Indication: TINEA INFECTION
     Dosage: 10 MG
     Route: 048
     Dates: start: 20100801

REACTIONS (14)
  - ANAEMIA [None]
  - BLOOD ALKALINE PHOSPHATASE INCREASED [None]
  - BLOOD CREATININE INCREASED [None]
  - BLOOD LACTATE DEHYDROGENASE INCREASED [None]
  - BLOOD UREA INCREASED [None]
  - DRUG ERUPTION [None]
  - ERYTHEMA [None]
  - GASTRIC ULCER HAEMORRHAGE [None]
  - PRURITUS [None]
  - PYREXIA [None]
  - SKIN EXFOLIATION [None]
  - TOXIC SKIN ERUPTION [None]
  - TREATMENT NONCOMPLIANCE [None]
  - VISION BLURRED [None]
